FAERS Safety Report 16172585 (Version 1)
Quarter: 2019Q2

REPORT INFORMATION
  Report Type: Spontaneous
  Country: CZ (occurrence: CZ)
  Receive Date: 20190409
  Receipt Date: 20190409
  Transmission Date: 20190711
  Serious: Yes (Life-Threatening)
  Sender: FDA-Public Use
  Company Number: CZ-SA-2019SA094645

PATIENT
  Age: 62 Year
  Sex: Male
  Weight: 120 kg

DRUGS (8)
  1. OXALIPLATIN. [Suspect]
     Active Substance: OXALIPLATIN
     Indication: COLON CANCER
     Dosage: 85 MG, UNK
     Route: 042
     Dates: start: 20181024, end: 20181024
  2. OXALIPLATIN. [Suspect]
     Active Substance: OXALIPLATIN
     Dosage: 85 MG, UNK (10TH CYCLE OF ADJUVANT CHEMOTHERAPY)
     Route: 042
     Dates: start: 20190318, end: 20190318
  3. GRANISETRON [Concomitant]
     Active Substance: GRANISETRON
     Indication: PREMEDICATION
     Dosage: 3 MG, UNK
     Route: 042
  4. RANITAL [RANITIDINE HYDROCHLORIDE] [Concomitant]
     Indication: PREMEDICATION
     Dosage: 50 MG, UNK
     Route: 042
  5. DEXAMED [DEXAMETHASONE SODIUM PHOSPHATE] [Concomitant]
     Indication: PREMEDICATION
     Dosage: 16 MG, UNK
     Route: 065
  6. TARKA [Concomitant]
     Active Substance: TRANDOLAPRIL\VERAPAMIL HYDROCHLORIDE
     Dosage: 180 MG, QD (1-0-0)
     Route: 048
  7. BISULEPIN HYDROCHLORIDE [Concomitant]
     Active Substance: BISULEPIN HYDROCHLORIDE
     Indication: PREMEDICATION
     Dosage: 1 MG, UNK
     Route: 042
  8. TORVAZIN [Concomitant]
     Dosage: 10 MG, QD (0-0-1)
     Route: 065

REACTIONS (6)
  - Hypertension [Recovered/Resolved]
  - Hypersensitivity [Recovering/Resolving]
  - Hyperhidrosis [Recovered/Resolved]
  - Erythema [Recovered/Resolved]
  - Nausea [Recovered/Resolved]
  - Hypotension [Recovered/Resolved]

NARRATIVE: CASE EVENT DATE: 20190318
